FAERS Safety Report 11717304 (Version 2)
Quarter: 2016Q1

REPORT INFORMATION
  Report Type: Spontaneous
  Country: US (occurrence: US)
  Receive Date: 20151109
  Receipt Date: 20160127
  Transmission Date: 20160525
  Serious: No
  Sender: FDA-Public Use
  Company Number: US-CELGENEUS-USA-2015106729

PATIENT
  Sex: Female

DRUGS (3)
  1. DANAZOL. [Concomitant]
     Active Substance: DANAZOL
     Indication: SPLENOMEGALY
     Route: 048
     Dates: start: 20150623, end: 20150925
  2. THALOMID [Suspect]
     Active Substance: THALIDOMIDE
     Indication: MYELOFIBROSIS
     Dosage: 50 MILLIGRAM
     Route: 048
     Dates: start: 20150925, end: 20151023
  3. HYDREA [Concomitant]
     Active Substance: HYDROXYUREA
     Indication: SPLENOMEGALY
     Route: 048
     Dates: start: 20140819, end: 20150925

REACTIONS (2)
  - Pruritus [Recovered/Resolved]
  - Lacrimation increased [Recovered/Resolved]

NARRATIVE: CASE EVENT DATE: 2015
